FAERS Safety Report 14639542 (Version 2)
Quarter: 2018Q2

REPORT INFORMATION
  Report Type: Spontaneous
  Country: US (occurrence: US)
  Receive Date: 20180315
  Receipt Date: 20180422
  Transmission Date: 20180711
  Serious: Yes (Hospitalization, Other)
  Sender: FDA-Public Use
  Company Number: US-APOTEX-2018AP008351

PATIENT
  Age: 68 Year
  Sex: Female

DRUGS (1)
  1. ZOLEDRONIC ACID INJECTION [Suspect]
     Active Substance: ZOLEDRONIC ACID
     Indication: OSTEOPOROSIS
     Dosage: 4 MG, UNK
     Route: 042

REACTIONS (11)
  - Hyphaema [Recovered/Resolved]
  - Exophthalmos [Recovered/Resolved]
  - Myalgia [Recovered/Resolved]
  - Corneal endotheliitis [Recovered/Resolved]
  - Iris adhesions [Recovered/Resolved]
  - Parophthalmia [Recovered/Resolved]
  - Iridocyclitis [Recovered/Resolved]
  - Pyrexia [Recovered/Resolved]
  - Eye inflammation [Recovered/Resolved]
  - Arthralgia [Recovered/Resolved]
  - Scleritis [Recovered/Resolved]
